FAERS Safety Report 16222371 (Version 1)
Quarter: 2019Q2

REPORT INFORMATION
  Report Type: Spontaneous
  Country: IT (occurrence: IT)
  Receive Date: 20190422
  Receipt Date: 20190422
  Transmission Date: 20190711
  Serious: Yes (Other)
  Sender: FDA-Public Use
  Company Number: IT-ACCORD-122723

PATIENT
  Age: 49 Year

DRUGS (4)
  1. EPOETIN ALFA [Concomitant]
     Active Substance: ERYTHROPOIETIN
  2. PACLITAXEL/PACLITAXEL LIPOSOME [Suspect]
     Active Substance: PACLITAXEL
     Indication: PRODUCT USED FOR UNKNOWN INDICATION
     Route: 042
     Dates: start: 20180504, end: 20180918
  3. AVASTIN [Suspect]
     Active Substance: BEVACIZUMAB
     Indication: PRODUCT USED FOR UNKNOWN INDICATION
     Route: 042
     Dates: start: 20180504, end: 20180918
  4. ZOLEDRONIC ACID [Concomitant]
     Active Substance: ZOLEDRONIC ACID
     Route: 042

REACTIONS (2)
  - Splenomegaly [Unknown]
  - Metastatic neoplasm [Unknown]

NARRATIVE: CASE EVENT DATE: 20181002
